FAERS Safety Report 4690474-3 (Version None)
Quarter: 2005Q2

REPORT INFORMATION
  Report Type: 
  Country: None (occurrence: None)
  Receive Date: 20050615
  Receipt Date: 20050317
  Transmission Date: 20051028
  Serious: Yes (Hospitalization, Other)
  Sender: FDA-Public Use
  Company Number: JP-ABBOTT-05P-087-0294607-00

PATIENT
  Age: 24 Month
  Sex: Female

DRUGS (9)
  1. VALPROIC ACID SYRUP [Suspect]
     Indication: SEVERE MENTAL RETARDATION
     Dosage: NOT REPORTED
  2. VALPROIC ACID SYRUP [Suspect]
     Indication: QUADRIPLEGIA
  3. VALPROIC ACID SYRUP [Suspect]
     Indication: EPILEPSY
  4. ZONISAMIDE [Concomitant]
     Indication: SEVERE MENTAL RETARDATION
     Dosage: NOT REPORTED
  5. ZONISAMIDE [Concomitant]
     Indication: QUADRIPLEGIA
  6. ZONISAMIDE [Concomitant]
     Indication: EPILEPSY
  7. CLOBAZAM [Concomitant]
     Indication: SEVERE MENTAL RETARDATION
     Dosage: NOT REPORTED
  8. CLOBAZAM [Concomitant]
     Indication: QUADRIPARESIS
  9. CLOBAZAM [Concomitant]
     Indication: EPILEPSY

REACTIONS (5)
  - ANAEMIA HAEMOLYTIC AUTOIMMUNE [None]
  - FANCONI SYNDROME [None]
  - METABOLIC ACIDOSIS [None]
  - PNEUMONIA [None]
  - PROTEINURIA [None]
